FAERS Safety Report 4346531-4 (Version None)
Quarter: 2004Q2

REPORT INFORMATION
  Report Type: 
  Country: None (occurrence: None)
  Receive Date: 20040426
  Receipt Date: 20031118
  Transmission Date: 20050107
  Serious: No
  Sender: FDA-Public Use
  Company Number: US-BRISTOL-MYERS SQUIBB COMPANY-12440558

PATIENT
  Age: 65 Year
  Sex: Female

DRUGS (6)
  1. CARBOPLATIN [Suspect]
     Indication: OVARIAN CANCER
     Dosage: LOT #S:3J-69486 EXP. 2/06       3F-75583 EXP. 5/06       3H-63188 EXP. 8/06
     Route: 042
     Dates: start: 20031118, end: 20031118
  2. TAXOL [Concomitant]
     Indication: OVARIAN CANCER
     Route: 042
     Dates: start: 20031118, end: 20031118
  3. BENADRYL [Concomitant]
     Indication: PREMEDICATION
     Route: 042
  4. PEPCID [Concomitant]
     Indication: PREMEDICATION
     Route: 042
  5. DECADRON [Concomitant]
     Indication: PREMEDICATION
     Route: 042
  6. KYTRIL [Concomitant]
     Indication: PREMEDICATION
     Route: 048

REACTIONS (1)
  - DRUG HYPERSENSITIVITY [None]
